FAERS Safety Report 23287057 (Version 1)
Quarter: 2023Q4

REPORT INFORMATION
  Report Type: Spontaneous
  Country: US (occurrence: US)
  Receive Date: 20231212
  Receipt Date: 20231212
  Transmission Date: 20240110
  Serious: No
  Sender: FDA-Public Use
  Company Number: US-TAKEDA-2023TUS119195

PATIENT
  Age: 5 Year
  Sex: Female

DRUGS (1)
  1. TAKHZYRO [Suspect]
     Active Substance: LANADELUMAB-FLYO
     Indication: Product used for unknown indication
     Dosage: 150 MILLIGRAM, Q4WEEKS
     Route: 065

REACTIONS (3)
  - Myopathy [Unknown]
  - Restless legs syndrome [Unknown]
  - Rash [Unknown]
